FAERS Safety Report 10923580 (Version 2)
Quarter: 2015Q2

REPORT INFORMATION
  Report Type: Spontaneous
  Country: US (occurrence: US)
  Receive Date: 20150318
  Receipt Date: 20150526
  Transmission Date: 20150821
  Serious: No
  Sender: FDA-Public Use
  Company Number: US-JNJFOC-20130906022

PATIENT
  Sex: Female

DRUGS (2)
  1. HALDOL [Suspect]
     Active Substance: HALOPERIDOL
     Indication: PRODUCT USED FOR UNKNOWN INDICATION
     Route: 065
  2. MOTILIUM [Suspect]
     Active Substance: DOMPERIDONE
     Indication: HYPEREMESIS GRAVIDARUM
     Route: 065

REACTIONS (1)
  - Exposure during pregnancy [Unknown]
